FAERS Safety Report 6479447-8 (Version None)
Quarter: 2009Q4

REPORT INFORMATION
  Report Type: 
  Country: None (occurrence: None)
  Receive Date: 20091207
  Receipt Date: 20090227
  Transmission Date: 20100525
  Serious: No
  Sender: FDA-Public Use
  Company Number: US-AMGEN-KDL336142

PATIENT
  Sex: Male

DRUGS (3)
  1. ENBREL [Suspect]
     Indication: RHEUMATOID ARTHRITIS
     Route: 058
     Dates: start: 20080401, end: 20090123
  2. LEFLUNOMIDE [Concomitant]
     Dates: start: 20050101
  3. PLAQUENIL [Concomitant]
     Dates: start: 19900101

REACTIONS (4)
  - DYSPNOEA [None]
  - PAIN [None]
  - PALPITATIONS [None]
  - RASH ERYTHEMATOUS [None]
